FAERS Safety Report 6341535-4 (Version None)
Quarter: 2009Q3

REPORT INFORMATION
  Report Type: 
  Country: None (occurrence: None)
  Receive Date: 20090904
  Receipt Date: 20090828
  Transmission Date: 20100115
  Serious: Yes (Other)
  Sender: FDA-Public Use
  Company Number: JP-MERCK-0909USA00264

PATIENT
  Age: 18 Year
  Sex: Female

DRUGS (2)
  1. PEPCID RPD [Suspect]
     Route: 048
     Dates: end: 20090826
  2. PREDONINE [Concomitant]
     Indication: NEURODEGENERATIVE DISORDER
     Route: 048

REACTIONS (1)
  - BRADYCARDIA [None]
